FAERS Safety Report 5825066-3 (Version None)
Quarter: 2008Q3

REPORT INFORMATION
  Report Type: 
  Country: None (occurrence: None)
  Receive Date: 20080729
  Receipt Date: 20080722
  Transmission Date: 20090109
  Serious: Yes (Other)
  Sender: FDA-Public Use
  Company Number: JP-BRISTOL-MYERS SQUIBB COMPANY-14279822

PATIENT
  Age: 78 Year
  Sex: Male

DRUGS (2)
  1. CARBIDOPA + LEVODOPA [Suspect]
     Route: 048
  2. NAUZELIN [Concomitant]

REACTIONS (1)
  - DEAFNESS [None]
